FAERS Safety Report 12802641 (Version 1)
Quarter: 2016Q3

REPORT INFORMATION
  Report Type: Spontaneous
  Country: US (occurrence: US)
  Receive Date: 20160930
  Receipt Date: 20160930
  Transmission Date: 20161109
  Serious: Yes (Other)
  Sender: FDA-Public Use
  Company Number: None

PATIENT
  Age: 89 Year
  Sex: Female
  Weight: 63.9 kg

DRUGS (17)
  1. LEVOTHYROXINE. [Concomitant]
     Active Substance: LEVOTHYROXINE
  2. ALPHA LIPOID ACID [Concomitant]
  3. CREON [Concomitant]
     Active Substance: PANCRELIPASE AMYLASE\PANCRELIPASE LIPASE\PANCRELIPASE PROTEASE
  4. RANITIDINE. [Concomitant]
     Active Substance: RANITIDINE
  5. MULTIVITAMIN [Concomitant]
     Active Substance: VITAMINS
  6. FUROSEMIDE. [Concomitant]
     Active Substance: FUROSEMIDE
  7. ASPIRIN. [Concomitant]
     Active Substance: ASPIRIN
  8. MINOXIDIL. [Concomitant]
     Active Substance: MINOXIDIL
  9. METROPOLO [Concomitant]
  10. MUSHROOM COMPLEX [Concomitant]
  11. PANTAPROZOLE [Concomitant]
     Active Substance: PANTOPRAZOLE SODIUM
  12. PROBIOTICS [Concomitant]
     Active Substance: PROBIOTICS NOS
  13. VITAMIN B6 [Concomitant]
     Active Substance: PYRIDOXINE HYDROCHLORIDE
  14. VITAMIN B12 [Concomitant]
     Active Substance: CYANOCOBALAMIN
  15. HYCOSYAMINE SULFATE 0.125 [Suspect]
     Active Substance: HYOSCYAMINE SULFATE
     Indication: GASTRIC DISORDER
     Dosage: ?          QUANTITY:1 TABLET(S);?
     Route: 048
     Dates: start: 20140331, end: 20160919
  16. IMODIUM [Concomitant]
     Active Substance: LOPERAMIDE HYDROCHLORIDE
  17. HEMO LYMPH (IRON) [Concomitant]

REACTIONS (3)
  - Heart rate irregular [None]
  - Agitation [None]
  - Heart rate increased [None]

NARRATIVE: CASE EVENT DATE: 20160919
